FAERS Safety Report 10870286 (Version 3)
Quarter: 2016Q2

REPORT INFORMATION
  Report Type: Spontaneous
  Country: US (occurrence: US)
  Receive Date: 20150226
  Receipt Date: 20160505
  Transmission Date: 20160815
  Serious: Yes (Death, Other)
  Sender: FDA-Public Use
  Company Number: US-ELI_LILLY_AND_COMPANY-US201502000152

PATIENT
  Age: 83 Year
  Sex: Female

DRUGS (1)
  1. ADCIRCA [Suspect]
     Active Substance: TADALAFIL
     Indication: PULMONARY HYPERTENSION
     Dosage: UNK, UNKNOWN
     Route: 065
     Dates: start: 20150520

REACTIONS (4)
  - Diarrhoea [Unknown]
  - Asthenia [Not Recovered/Not Resolved]
  - Intestinal perforation [Unknown]
  - Death [Fatal]

NARRATIVE: CASE EVENT DATE: 20160426
